FAERS Safety Report 18208764 (Version 2)
Quarter: 2020Q3

REPORT INFORMATION
  Report Type: Spontaneous
  Country: US (occurrence: US)
  Receive Date: 20200828
  Receipt Date: 20200908
  Transmission Date: 20201103
  Serious: Yes (Death, Hospitalization, Other)
  Sender: FDA-Public Use
  Company Number: US-TAKEDA-2020TUS036324

PATIENT
  Age: 48 Year
  Sex: Male
  Weight: 99 kg

DRUGS (5)
  1. VYVANSE [Concomitant]
     Active Substance: LISDEXAMFETAMINE DIMESYLATE
     Indication: ATTENTION DEFICIT HYPERACTIVITY DISORDER
     Dosage: 30 MILLIGRAM, QD
  2. FOLIC ACID. [Concomitant]
     Active Substance: FOLIC ACID
     Dosage: 1 MILLIGRAM
     Route: 048
  3. ENTYVIO [Suspect]
     Active Substance: VEDOLIZUMAB
     Indication: CROHN^S DISEASE
     Dosage: 300 MILLIGRAM
     Route: 042
     Dates: start: 20150630
  4. LOMOTIL [Concomitant]
     Active Substance: ATROPINE SULFATE\DIPHENOXYLATE HYDROCHLORIDE
     Indication: DIARRHOEA
     Dosage: UNK UNK, PRN
  5. PROTONIX                           /00661201/ [Concomitant]
     Active Substance: OMEPRAZOLE
     Indication: GASTROOESOPHAGEAL REFLUX DISEASE
     Dosage: 40 MILLIGRAM, QD

REACTIONS (4)
  - Procedural complication [Fatal]
  - Crohn^s disease [Unknown]
  - Basilar artery aneurysm [Unknown]
  - Subarachnoid haemorrhage [Recovered/Resolved]

NARRATIVE: CASE EVENT DATE: 20150718
